FAERS Safety Report 6100707-4 (Version None)
Quarter: 2009Q1

REPORT INFORMATION
  Report Type: 
  Country: None (occurrence: None)
  Receive Date: 20090303
  Receipt Date: 20090227
  Transmission Date: 20090719
  Serious: Yes (Death)
  Sender: FDA-Public Use
  Company Number: PHHY2009MX05587

PATIENT
  Age: 81 Year
  Sex: Female

DRUGS (3)
  1. ZOMETA [Suspect]
     Indication: BONE NEOPLASM MALIGNANT
     Dosage: 4 MG, UNK
     Dates: end: 20081207
  2. ZOMETA [Suspect]
     Indication: BONE PAIN
  3. INSULIN [Concomitant]

REACTIONS (1)
  - RENAL FAILURE CHRONIC [None]
